FAERS Safety Report 23040698 (Version 1)
Quarter: 2023Q4

REPORT INFORMATION
  Report Type: Report from Study
  Country: US (occurrence: US)
  Receive Date: 20231006
  Receipt Date: 20231006
  Transmission Date: 20240110
  Serious: Yes (Other)
  Sender: FDA-Public Use
  Company Number: US-ABBVIE-5437200

PATIENT
  Age: 61 Year
  Sex: Male

DRUGS (1)
  1. RINVOQ [Suspect]
     Active Substance: UPADACITINIB
     Indication: Product used for unknown indication
     Route: 048
     Dates: start: 20200601

REACTIONS (5)
  - Ligament operation [Unknown]
  - Condition aggravated [Recovered/Resolved]
  - Insomnia [Unknown]
  - Pain [Unknown]
  - Meniscus operation [Unknown]

NARRATIVE: CASE EVENT DATE: 20220917
